FAERS Safety Report 15239476 (Version 1)
Quarter: 2018Q3

REPORT INFORMATION
  Report Type: Spontaneous
  Country: US (occurrence: US)
  Receive Date: 20180803
  Receipt Date: 20180803
  Transmission Date: 20181010
  Serious: Yes (Other)
  Sender: FDA-Public Use
  Company Number: US-ASTRAZENECA-2018SE96473

PATIENT
  Age: 51 Year
  Sex: Female
  Weight: 82.1 kg

DRUGS (7)
  1. NEXIUM [Suspect]
     Active Substance: ESOMEPRAZOLE MAGNESIUM
     Indication: GASTROOESOPHAGEAL REFLUX DISEASE
     Route: 048
  2. NEXIUM 24HR [Suspect]
     Active Substance: ESOMEPRAZOLE MAGNESIUM
     Route: 048
  3. CENTRUM SILVER FOR WOMEN [Concomitant]
     Active Substance: MINERALS\VITAMINS
  4. ESTRADIOL. [Concomitant]
     Active Substance: ESTRADIOL
  5. ALLEGRA [Concomitant]
     Active Substance: FEXOFENADINE HYDROCHLORIDE
  6. PRILOSEC [Suspect]
     Active Substance: OMEPRAZOLE MAGNESIUM
     Indication: GASTROOESOPHAGEAL REFLUX DISEASE
     Route: 048
  7. PRILOSEC [Suspect]
     Active Substance: OMEPRAZOLE MAGNESIUM
     Indication: GASTROOESOPHAGEAL REFLUX DISEASE
     Route: 048
     Dates: start: 1995

REACTIONS (23)
  - Urticaria [Unknown]
  - Helicobacter gastritis [Unknown]
  - Cystitis [Unknown]
  - Gastric disorder [Unknown]
  - Off label use [Unknown]
  - Pain [Unknown]
  - Oesophageal irritation [Unknown]
  - Gastrooesophageal reflux disease [Unknown]
  - Asthma [Unknown]
  - Drug hypersensitivity [Unknown]
  - Vomiting [Unknown]
  - Road traffic accident [Unknown]
  - Muscle strain [Not Recovered/Not Resolved]
  - Urethral stenosis [Unknown]
  - Palpitations [Recovered/Resolved]
  - Fatigue [Unknown]
  - Osteopenia [Unknown]
  - Diarrhoea [Unknown]
  - Drug ineffective [Unknown]
  - Joint dislocation [Unknown]
  - Genital discomfort [Unknown]
  - Hyperhidrosis [Unknown]
  - Product use in unapproved indication [Unknown]

NARRATIVE: CASE EVENT DATE: 1995
